FAERS Safety Report 8679679 (Version 2)
Quarter: 2013Q1

REPORT INFORMATION
  Report Type: Spontaneous
  Country: US (occurrence: None)
  Receive Date: 20120706
  Receipt Date: 20130219
  Transmission Date: 20140127
  Serious: Yes (Other)
  Sender: FDA-Public Use
  Company Number: DSU-2012-05219

PATIENT
  Age: 64 Year
  Sex: Male

DRUGS (4)
  1. OLMESARTAN MEDOXOMIL [Suspect]
     Dosage: 40 MG (40 MG, QD) PER ORAL
     Route: 048
     Dates: end: 20110204
  2. DOXAZOSIN (DOXAZOSIN) (DOXAZOSIN) [Concomitant]
  3. LIPITOR (ATORVASTATIN CALCIUM) (ATORBASTATIN CALCIUM) [Concomitant]
  4. TRICOR (ADENOSINE) (ADENOSINE) [Concomitant]

REACTIONS (2)
  - DIARRHOEA [None]
  - MALABSORPTION [None]
